FAERS Safety Report 6976061-2 (Version None)
Quarter: 2010Q3

REPORT INFORMATION
  Report Type: 
  Country: None (occurrence: None)
  Receive Date: 20100910
  Receipt Date: 20100830
  Transmission Date: 20110219
  Serious: Yes (Other)
  Sender: FDA-Public Use
  Company Number: GB-SANOFI-AVENTIS-2010SA051542

PATIENT
  Sex: Female

DRUGS (3)
  1. OXALIPLATIN [Suspect]
     Route: 065
  2. OXALIPLATIN [Suspect]
     Route: 065
  3. CAPECITABINE [Suspect]
     Route: 065

REACTIONS (2)
  - COMA [None]
  - VOMITING [None]
